FAERS Safety Report 8578676-7 (Version None)
Quarter: 2012Q3

REPORT INFORMATION
  Report Type: 
  Country: None (occurrence: None)
  Receive Date: 20120808
  Receipt Date: 20120730
  Transmission Date: 20120928
  Serious: Yes (Other)
  Sender: FDA-Public Use
  Company Number: JP-VERTEX PHARMACEUTICALS INC.-AE-2012-011486

PATIENT
  Age: 60 Year
  Sex: Female

DRUGS (5)
  1. TELAVIC (TELAPREVIR) [Suspect]
     Indication: HEPATITIS C
     Route: 048
     Dates: start: 20120601, end: 20120711
  2. PEGINTERFERON ALFA-2B [Concomitant]
     Indication: HEPATITIS C
     Route: 058
     Dates: start: 20120601
  3. RIBAVIRIN [Concomitant]
     Route: 048
     Dates: start: 20120705, end: 20120711
  4. RIBAVIRIN [Concomitant]
     Indication: HEPATITIS C
     Route: 048
     Dates: start: 20120601, end: 20120627
  5. RIBAVIRIN [Concomitant]
     Route: 048
     Dates: start: 20120628, end: 20120704

REACTIONS (4)
  - DYSGEUSIA [None]
  - RED BLOOD CELL COUNT DECREASED [None]
  - HYPERURICAEMIA [None]
  - RASH [None]
